FAERS Safety Report 9099289 (Version 1)
Quarter: 2013Q1

REPORT INFORMATION
  Report Type: Spontaneous
  Country: US (occurrence: US)
  Receive Date: 20130214
  Receipt Date: 20130214
  Transmission Date: 20140127
  Serious: No
  Sender: FDA-Public Use
  Company Number: US-COVIDIEN/TYCO HEALTHCARE/MALLINCKRODT-T201300105

PATIENT
  Sex: Female
  Weight: 49.89 kg

DRUGS (3)
  1. FENTANYL TRANSDERMAL SYSTEM [Suspect]
     Indication: PAIN
     Dosage: 25 MCG/HR Q 48 HRS
     Route: 062
     Dates: start: 201301
  2. CYMBALTA [Concomitant]
     Dosage: UNK
  3. FENTANYL [Concomitant]
     Dosage: UNK
     Dates: start: 201102, end: 201301

REACTIONS (4)
  - Application site erosion [Not Recovered/Not Resolved]
  - Pain [Unknown]
  - Inappropriate schedule of drug administration [Recovered/Resolved]
  - Drug ineffective [Not Recovered/Not Resolved]
